FAERS Safety Report 6652543-8 (Version None)
Quarter: 2010Q1

REPORT INFORMATION
  Report Type: 
  Country: None (occurrence: None)
  Receive Date: 20100325
  Receipt Date: 20100325
  Transmission Date: 20100710
  Serious: No
  Sender: FDA-Public Use
  Company Number: None

PATIENT
  Age: 15 Year
  Sex: Male
  Weight: 68.0396 kg

DRUGS (1)
  1. ADDERALL 10 [Suspect]
     Indication: ATTENTION DEFICIT/HYPERACTIVITY DISORDER
     Dosage: 20 MG 1 A DAY PO
     Route: 048
     Dates: start: 20090304, end: 20090324

REACTIONS (3)
  - HEADACHE [None]
  - HYPERSOMNIA [None]
  - PRODUCT QUALITY ISSUE [None]
